FAERS Safety Report 13041352 (Version 1)
Quarter: 2016Q4

REPORT INFORMATION
  Report Type: Spontaneous
  Country: US (occurrence: US)
  Receive Date: 20161219
  Receipt Date: 20161219
  Transmission Date: 20170207
  Serious: Yes (Other)
  Sender: FDA-Public Use
  Company Number: US-ROCHE-1064450

PATIENT
  Sex: Male

DRUGS (1)
  1. ZELBORAF [Suspect]
     Active Substance: VEMURAFENIB
     Indication: PRODUCT USED FOR UNKNOWN INDICATION

REACTIONS (8)
  - Decreased appetite [Unknown]
  - Alopecia [Unknown]
  - Squamous cell carcinoma [Unknown]
  - Blood test abnormal [Unknown]
  - Weight decreased [Unknown]
  - Visual impairment [Unknown]
  - Vomiting [Unknown]
  - Dysgeusia [Unknown]
